FAERS Safety Report 23843513 (Version 1)
Quarter: 2024Q2

REPORT INFORMATION
  Report Type: Spontaneous
  Country: US (occurrence: None)
  Receive Date: 20240510
  Receipt Date: 20240510
  Transmission Date: 20240716
  Serious: Yes (Other)
  Sender: FDA-Public Use
  Company Number: US-ROCHE-3555394

PATIENT
  Age: 86 Year
  Sex: Female

DRUGS (2)
  1. VABYSMO [Suspect]
     Active Substance: FARICIMAB\FARICIMAB-SVOA
     Indication: Neovascular age-related macular degeneration
     Dosage: SUBSEQUENT INJECTIONS ADMINISTERED ON 07-SEP-2022, 28-DEC-2022 AND 31-JAN-2024
     Route: 050
     Dates: start: 20220628
  2. AVASTIN [Suspect]
     Active Substance: BEVACIZUMAB
     Indication: Neovascular age-related macular degeneration
     Route: 050
     Dates: start: 20220503

REACTIONS (7)
  - Blindness unilateral [Not Recovered/Not Resolved]
  - Central vision loss [Not Recovered/Not Resolved]
  - Retinal haemorrhage [Not Recovered/Not Resolved]
  - Visual field defect [Not Recovered/Not Resolved]
  - Headache [Unknown]
  - Off label use [Unknown]
  - Off label use [Unknown]
